FAERS Safety Report 5623511-X (Version None)
Quarter: 2008Q1

REPORT INFORMATION
  Report Type: 
  Country: None (occurrence: None)
  Receive Date: 20080212
  Receipt Date: 20080131
  Transmission Date: 20080703
  Serious: Yes (Hospitalization)
  Sender: FDA-Public Use
  Company Number: US-ELI_LILLY_AND_COMPANY-US200801002094

PATIENT
  Sex: Male
  Weight: 127.89 kg

DRUGS (11)
  1. BYETTA [Suspect]
     Dosage: 5 UG, 2/D
     Route: 058
     Dates: start: 20060112, end: 20060620
  2. BYETTA [Suspect]
     Dosage: 10 UG, 2/D
     Route: 058
     Dates: start: 20060620, end: 20071217
  3. ZESTRIL [Concomitant]
     Indication: PROPHYLAXIS
     Dosage: 5 MG, UNKNOWN
  4. ALLEGRA [Concomitant]
     Indication: HYPERSENSITIVITY
     Dosage: 180 MG, UNKNOWN
  5. GLYBURIDE [Concomitant]
     Indication: DIABETES MELLITUS
     Dosage: 6 MG, 2/D
  6. HUMALOG MIX /SPA/ [Concomitant]
     Indication: DIABETES MELLITUS
     Dosage: 95 U, EACH MORNING
  7. HUMALOG MIX /SPA/ [Concomitant]
     Dosage: 65 U, EACH EVENING
  8. HUMALOG MIX /SPA/ [Concomitant]
     Dosage: 86 U, EACH MORNING
  9. HUMALOG MIX /SPA/ [Concomitant]
     Dosage: 60 U, EACH EVENING
  10. MULTI-VITAMIN [Concomitant]
     Dosage: UNK, UNKNOWN
  11. ASPIRIN [Concomitant]
     Indication: PROPHYLAXIS
     Dosage: 81 MG, DAILY (1/D)

REACTIONS (2)
  - PANCREATITIS [None]
  - WEIGHT DECREASED [None]
